FAERS Safety Report 17842701 (Version 1)
Quarter: 2020Q2

REPORT INFORMATION
  Report Type: Report from Study
  Country: KR (occurrence: KR)
  Receive Date: 20200529
  Receipt Date: 20200529
  Transmission Date: 20200714
  Serious: Yes (Hospitalization)
  Sender: FDA-Public Use
  Company Number: KR-JNJFOC-20200529703

PATIENT
  Sex: Female

DRUGS (10)
  1. RIVAROXABAN [Suspect]
     Active Substance: RIVAROXABAN
     Indication: CEREBROVASCULAR ACCIDENT PROPHYLAXIS
     Dosage: 15 MG, QD
     Route: 048
     Dates: start: 20200106
  2. RIVAROXABAN [Suspect]
     Active Substance: RIVAROXABAN
     Indication: THROMBOSIS PROPHYLAXIS
  3. CONCOR [Concomitant]
     Active Substance: BISOPROLOL FUMARATE
     Dosage: 2.5 MG
     Route: 048
     Dates: start: 20150514
  4. ISOTRIL [Concomitant]
     Active Substance: ISOSORBIDE MONONITRATE
     Dosage: 25 MG
     Route: 048
     Dates: start: 20200106
  5. VASTINAN [Concomitant]
     Active Substance: TRIMETAZIDINE DIHYDROCHLORIDE
     Dosage: 35 MG
     Route: 048
     Dates: start: 20181025
  6. ALDACTONE [Concomitant]
     Active Substance: SPIRONOLACTONE
     Dosage: 25 MG
     Route: 048
     Dates: start: 20150514
  7. RIVAROXABAN [Suspect]
     Active Substance: RIVAROXABAN
     Indication: ATRIAL FIBRILLATION
  8. ENTRESTO [Concomitant]
     Active Substance: SACUBITRIL\VALSARTAN
     Dosage: 80 MG
     Route: 048
     Dates: start: 20181108
  9. LIPINON [Concomitant]
     Dosage: 10 MG
     Route: 048
     Dates: start: 20170411
  10. LASIX [Concomitant]
     Active Substance: FUROSEMIDE
     Dosage: 80 MG
     Route: 048
     Dates: start: 20150706

REACTIONS (1)
  - Oedema [Recovered/Resolved]

NARRATIVE: CASE EVENT DATE: 20200224
